FAERS Safety Report 7018402-6 (Version None)
Quarter: 2010Q3

REPORT INFORMATION
  Report Type: 
  Country: None (occurrence: None)
  Receive Date: 20100928
  Receipt Date: 20100921
  Transmission Date: 20110219
  Serious: Yes (Hospitalization, Other)
  Sender: FDA-Public Use
  Company Number: PHHY2010US62930

PATIENT
  Sex: Female

DRUGS (2)
  1. TOBI [Suspect]
     Indication: BRONCHIECTASIS
     Dosage: TWICE A DAY
  2. TOBI [Suspect]
     Dosage: ONCE A DAY

REACTIONS (6)
  - ASPIRATION [None]
  - BRONCHIECTASIS [None]
  - CONDITION AGGRAVATED [None]
  - DEAFNESS [None]
  - LETHARGY [None]
  - LOSS OF CONSCIOUSNESS [None]
